FAERS Safety Report 20641582 (Version 2)
Quarter: 2022Q2

REPORT INFORMATION
  Report Type: Spontaneous
  Country: FR (occurrence: FR)
  Receive Date: 20220328
  Receipt Date: 20220425
  Transmission Date: 20220720
  Serious: Yes (Hospitalization, Disabling, Other)
  Sender: FDA-Public Use
  Company Number: FR-SA-SAC20220322001724

PATIENT
  Age: 54 Year
  Sex: Female

DRUGS (22)
  1. ARAVA [Suspect]
     Active Substance: LEFLUNOMIDE
     Dosage: 20 MG, QD
     Dates: start: 20051118, end: 20130910
  2. ENBREL [Suspect]
     Active Substance: ETANERCEPT
     Dosage: 50 MG
     Dates: start: 20051217, end: 202102
  3. ENBREL [Suspect]
     Active Substance: ETANERCEPT
     Dosage: 50 MG
     Dates: start: 201711, end: 201803
  4. METHOTREXATE [Suspect]
     Active Substance: METHOTREXATE
  5. PREDNISONE [Suspect]
     Active Substance: PREDNISONE
     Dosage: 10 MG
  6. TOCILIZUMAB [Suspect]
     Active Substance: TOCILIZUMAB
     Dosage: UNK
     Dates: start: 20210415, end: 20210526
  7. GOLD SODIUM THIOMALATE [Concomitant]
     Active Substance: GOLD SODIUM THIOMALATE
     Indication: Rheumatoid arthritis
  8. ANTIVOT [Concomitant]
  9. PLAQUENIL [Concomitant]
     Active Substance: HYDROXYCHLOROQUINE SULFATE
  10. SULFASALAZINE [Concomitant]
     Active Substance: SULFASALAZINE
  11. KINERET [Concomitant]
     Active Substance: ANAKINRA
  12. REMICADE [Concomitant]
     Active Substance: INFLIXIMAB
  13. HUMIRA [Suspect]
     Active Substance: ADALIMUMAB
     Dosage: UNK
     Dates: end: 20051117
  14. VOLTAREN [Concomitant]
     Active Substance: DICLOFENAC SODIUM
  15. METOPIMAZINE [Concomitant]
     Active Substance: METOPIMAZINE
     Indication: Nausea
     Dosage: 7.5 MG
  16. LEVOTHYROXINE SODIUM [Concomitant]
     Active Substance: LEVOTHYROXINE SODIUM
     Dosage: 50 UG, QD
  17. PREDNISOLONE [Concomitant]
     Active Substance: PREDNISOLONE
  18. OLUMIANT [Suspect]
     Active Substance: BARICITINIB
     Dosage: UNK
     Dates: start: 201711, end: 201803
  19. ORENCIA [Suspect]
     Active Substance: ABATACEPT
  20. GAVISCONELL [SODIUM ALGINATE;SODIUM BICARBONATE] [Concomitant]
  21. CALCIUM [Concomitant]
     Active Substance: CALCIUM
  22. PANTOPRAZOLE [Concomitant]
     Active Substance: PANTOPRAZOLE

REACTIONS (35)
  - Disability [Unknown]
  - Pain [Recovered/Resolved with Sequelae]
  - Rash macular [Unknown]
  - Pruritus [Unknown]
  - Vomiting [Recovered/Resolved with Sequelae]
  - Rheumatoid arthritis [Recovered/Resolved with Sequelae]
  - Uveitis [Recovered/Resolved with Sequelae]
  - Rash [Unknown]
  - Pruritus [Recovered/Resolved with Sequelae]
  - Pain in extremity [Unknown]
  - Rash maculo-papular [Recovered/Resolved with Sequelae]
  - Prurigo [Recovered/Resolved with Sequelae]
  - Acne [Recovered/Resolved with Sequelae]
  - Eczema [Recovered/Resolved with Sequelae]
  - Acanthosis [Recovered/Resolved with Sequelae]
  - Rash erythematous [Recovered/Resolved with Sequelae]
  - Weight increased [Recovered/Resolved with Sequelae]
  - Elbow deformity [Recovered/Resolved with Sequelae]
  - Lipoma excision [Recovered/Resolved with Sequelae]
  - Endoscopy upper gastrointestinal tract [Recovered/Resolved with Sequelae]
  - Large intestine polyp [Recovered/Resolved with Sequelae]
  - Oesophagitis [Recovered/Resolved with Sequelae]
  - Umbilical hernia [Recovered/Resolved with Sequelae]
  - Arthralgia [Recovered/Resolved with Sequelae]
  - Synovial cyst [Recovered/Resolved with Sequelae]
  - Cyst [Recovered/Resolved with Sequelae]
  - Thyroidectomy [Recovered/Resolved with Sequelae]
  - Decreased appetite [Recovered/Resolved with Sequelae]
  - Asthenia [Recovered/Resolved with Sequelae]
  - Abdominal pain [Recovered/Resolved with Sequelae]
  - Constipation [Recovered/Resolved with Sequelae]
  - Fungal infection [Recovered/Resolved with Sequelae]
  - Diverticulum intestinal [Recovered/Resolved with Sequelae]
  - Hiatus hernia [Recovered/Resolved with Sequelae]
  - Gastrooesophageal reflux disease [Recovered/Resolved with Sequelae]

NARRATIVE: CASE EVENT DATE: 20130403
